FAERS Safety Report 8082458-2 (Version None)
Quarter: 2012Q1

REPORT INFORMATION
  Report Type: 
  Country: None (occurrence: None)
  Receive Date: 20120127
  Receipt Date: 20110214
  Transmission Date: 20120608
  Serious: No
  Sender: FDA-Public Use
  Company Number: US-ABBOTT-11P-163-0706384-00

PATIENT
  Sex: Female
  Weight: 102.15 kg

DRUGS (17)
  1. GABAPENTIN [Concomitant]
     Indication: NEUROPATHY PERIPHERAL
  2. SIMVASTATIN [Concomitant]
     Indication: POSTOPERATIVE CARE
  3. ASPIRIN [Concomitant]
     Indication: POSTOPERATIVE CARE
  4. ENALAPRIL MALEATE [Concomitant]
     Indication: HYPERTENSION
  5. METOPROLOL TARTRATE [Concomitant]
     Indication: HYPERTENSION
  6. COLACE [Concomitant]
     Indication: BOWEL MOVEMENT IRREGULARITY
  7. HYDROCODONE BITARTRATE [Concomitant]
     Indication: PAIN
  8. HUMIRA [Suspect]
     Indication: RHEUMATOID ARTHRITIS
     Dates: start: 20060101, end: 20100801
  9. FUROSEMIDE [Concomitant]
     Indication: POSTOPERATIVE CARE
  10. HUMALIN N INSULIN [Concomitant]
     Indication: DIABETES MELLITUS
  11. MULTI-VITAMIN [Concomitant]
     Indication: PRODUCT USED FOR UNKNOWN INDICATION
  12. OMEPRAZOLE [Concomitant]
     Indication: DYSPEPSIA
  13. HUMALIN R INSULIN [Concomitant]
     Indication: DIABETES MELLITUS
  14. CPAP [Concomitant]
     Indication: SLEEP APNOEA SYNDROME
  15. OXYGEN [Concomitant]
     Indication: SLEEP APNOEA SYNDROME
     Dosage: WITH CPAP
  16. PROZAC [Concomitant]
     Indication: DEPRESSION
  17. FLONASE [Concomitant]
     Indication: HYPERSENSITIVITY

REACTIONS (1)
  - ARTHRALGIA [None]
